FAERS Safety Report 7393994-6 (Version None)
Quarter: 2011Q2

REPORT INFORMATION
  Report Type: 
  Country: None (occurrence: None)
  Receive Date: 20110405
  Receipt Date: 20100727
  Transmission Date: 20111010
  Serious: No
  Sender: FDA-Public Use
  Company Number: US-AMGEN-KDL427139

PATIENT
  Age: 71 Year
  Sex: Female

DRUGS (1)
  1. NEULASTA [Suspect]
     Indication: CHEMOTHERAPY
     Dosage: UNK UNK, UNK

REACTIONS (6)
  - GAIT DISTURBANCE [None]
  - NEUROPATHY PERIPHERAL [None]
  - CONTUSION [None]
  - MUSCLE SPASMS [None]
  - PAIN [None]
  - LIMB DISCOMFORT [None]
